FAERS Safety Report 7296317-6 (Version None)
Quarter: 2011Q1

REPORT INFORMATION
  Report Type: 
  Country: None (occurrence: None)
  Receive Date: 20110216
  Receipt Date: 20110204
  Transmission Date: 20110831
  Serious: Yes (Death, Hospitalization, Disabling)
  Sender: FDA-Public Use
  Company Number: JP-BAYER-200812244BYL

PATIENT
  Age: 57 Year
  Sex: Male
  Weight: 54 kg

DRUGS (1)
  1. NEXAVAR [Suspect]
     Indication: RENAL CELL CARCINOMA
     Dosage: 400 MG, BID
     Route: 048
     Dates: start: 20080825, end: 20080908

REACTIONS (4)
  - PLEURAL EFFUSION [None]
  - PALMAR-PLANTAR ERYTHRODYSAESTHESIA SYNDROME [None]
  - RENAL CELL CARCINOMA [None]
  - HYPERSENSITIVITY [None]
